FAERS Safety Report 9529166 (Version 2)
Quarter: 2013Q3

REPORT INFORMATION
  Report Type: Not Available
  Country: US (occurrence: US)
  Receive Date: 20130916
  Receipt Date: 20130916
  Transmission Date: 20140515
  Serious: No
  Sender: FDA-Public Use
  Company Number: US-LUNDBECK-DKLU1088911

PATIENT
  Age: 55 Year
  Sex: Male
  Weight: 64.41 kg

DRUGS (7)
  1. ONFI [Suspect]
     Indication: EPILEPSY
     Route: 048
     Dates: start: 20120820
  2. ONFI [Suspect]
     Dates: start: 20120823
  3. ONFI [Suspect]
  4. DIVALPROEX SODIUM [Concomitant]
     Indication: PRODUCT USED FOR UNKNOWN INDICATION
     Dates: start: 20120413
  5. FELBAMATE [Concomitant]
     Indication: PRODUCT USED FOR UNKNOWN INDICATION
  6. FELBAMATE [Concomitant]
  7. LEVOTHYROXINE [Concomitant]
     Indication: HYPOTHYROIDISM

REACTIONS (3)
  - Oedema peripheral [Unknown]
  - Musculoskeletal stiffness [Unknown]
  - Weight increased [Unknown]
